FAERS Safety Report 6444434-2 (Version None)
Quarter: 2009Q4

REPORT INFORMATION
  Report Type: 
  Country: None (occurrence: None)
  Receive Date: 20091117
  Receipt Date: 20091117
  Transmission Date: 20100525
  Serious: No
  Sender: FDA-Public Use
  Company Number: None

PATIENT
  Age: 42 Year
  Sex: Female
  Weight: 47.6277 kg

DRUGS (1)
  1. KENALOG [Suspect]
     Indication: SCAR
     Dosage: 5MG THREE TIMES ID
     Route: 026
     Dates: start: 20090424, end: 20090622

REACTIONS (6)
  - INJECTION SITE DISCOLOURATION [None]
  - INJECTION SITE INDURATION [None]
  - NO THERAPEUTIC RESPONSE [None]
  - PROCEDURAL SITE REACTION [None]
  - SKIN DISCOLOURATION [None]
  - SKIN INDURATION [None]
